FAERS Safety Report 6564851-X (Version None)
Quarter: 2010Q1

REPORT INFORMATION
  Report Type: 
  Country: None (occurrence: None)
  Receive Date: 20100201
  Receipt Date: 20100121
  Transmission Date: 20100710
  Serious: Yes (Life-Threatening, Hospitalization)
  Sender: FDA-Public Use
  Company Number: DE-PFIZER INC-2010008340

PATIENT
  Age: 78 Year
  Sex: Female

DRUGS (10)
  1. HYDROCORTISONE AND HYDROCORTISONE ACETATE AND HYDROCORTISONE CIPIONATE [Suspect]
     Indication: COLON CANCER
     Dosage: 60 MG IN THE MORNING, 30 MG IN THE NOON, 20 MG IN THE EVENING
     Route: 048
  2. ASPIRIN [Concomitant]
     Indication: CORONARY ARTERY DISEASE
     Dosage: 100 MG, 1X/DAY
     Route: 048
  3. NEBILET [Concomitant]
     Indication: CARDIAC FAILURE
     Dosage: 5 MG, 1X/DAY
     Route: 048
  4. RAMIPRIL [Concomitant]
     Indication: CARDIAC FAILURE
     Dosage: 2.5 MG, 1X/DAY
     Route: 048
  5. DULCOLAX [Concomitant]
     Indication: CONSTIPATION
     Dosage: 20 GTT, 3X/DAY
     Route: 048
  6. LASIX [Concomitant]
     Indication: CARDIAC FAILURE
     Dosage: 80 MG IN THE MORNING, 40 MG IN THE NOON
     Route: 048
  7. HEPARIN [Concomitant]
     Indication: RENAL IMPAIRMENT
     Dosage: 5000 IU TRICE DAILY ON DAYS WITHOUT DIALYSIS
     Route: 058
  8. PANTOPRAZOLE [Concomitant]
     Indication: PROPHYLAXIS AGAINST GASTROINTESTINAL ULCER
     Dosage: 40 MG, 2X/DAY
     Route: 048
  9. METAMIZOLE SODIUM [Concomitant]
     Indication: COLON CANCER
     Dosage: 20 GTT, UNK
     Route: 048
  10. DIGITOXIN [Concomitant]
     Indication: TACHYARRHYTHMIA
     Dosage: 0.07 MG, 1X/DAY
     Route: 048

REACTIONS (1)
  - UROSEPSIS [None]
